FAERS Safety Report 9337921 (Version 3)
Quarter: 2013Q3

REPORT INFORMATION
  Report Type: Spontaneous
  Country: CN (occurrence: CN)
  Receive Date: 20130609
  Receipt Date: 20130910
  Transmission Date: 20140515
  Serious: Yes (Other)
  Sender: FDA-Public Use
  Company Number: CN-SANOFI-AVENTIS-2013SA054761

PATIENT
  Age: 58 Year
  Sex: Male
  Weight: 68 kg

DRUGS (3)
  1. PLAVIX [Suspect]
     Indication: THROMBOSIS
     Route: 048
     Dates: start: 20130130
  2. ASPIRIN [Concomitant]
  3. LOVASTATIN [Concomitant]

REACTIONS (4)
  - Angina pectoris [Recovered/Resolved]
  - Suspected counterfeit product [Unknown]
  - Sense of oppression [Recovered/Resolved]
  - Palpitations [Recovered/Resolved]
